FAERS Safety Report 6373306 (Version 5)
Quarter: 2013Q4

REPORT INFORMATION
  Report Type: Spontaneous
  Country: US (occurrence: US)
  Receive Date: 20070801
  Receipt Date: 20131111
  Transmission Date: 20140711
  Serious: Yes (Hospitalization, Other)
  Sender: FDA-Public Use
  Company Number: US-PFIZER INC-2007062053

PATIENT
  Age: 58 Year
  Sex: Female
  Weight: 62.59 kg

DRUGS (11)
  1. LIPITOR [Suspect]
     Indication: CORONARY ARTERY DISEASE
     Dosage: 10 MG, 1X/DAY
     Route: 048
     Dates: start: 1997
  2. LIPITOR [Suspect]
     Indication: BLOOD CHOLESTEROL INCREASED
     Dosage: 20 MG, 1X/DAY
  3. LIPITOR [Suspect]
     Indication: CORONARY ARTERY OCCLUSION
     Dosage: 40 MG, 1X/DAY
     Route: 048
  4. LIPITOR [Suspect]
     Dosage: 20 MG, DAILY
     Route: 048
  5. LIPITOR [Suspect]
     Dosage: UNK
     Route: 048
  6. LESCOL [Suspect]
     Dosage: UNK
     Dates: start: 20021007
  7. CRESTOR [Suspect]
     Dosage: UNK
     Dates: start: 20040528
  8. PROTONIX [Concomitant]
     Indication: BARRETT^S OESOPHAGUS
     Dosage: 40 MG, 1X/DAY
     Route: 048
  9. PROTONIX [Concomitant]
     Indication: SOFT TISSUE DISORDER
     Route: 048
  10. PROTONIX [Concomitant]
     Dosage: UNK
  11. PREVACID [Concomitant]
     Dosage: UNK

REACTIONS (31)
  - Gastrointestinal neoplasm [Not Recovered/Not Resolved]
  - Pain [Not Recovered/Not Resolved]
  - Uterine leiomyoma [Unknown]
  - Blood alkaline phosphatase increased [Unknown]
  - Chest discomfort [Unknown]
  - Tendon rupture [Recovering/Resolving]
  - Bursitis [Recovering/Resolving]
  - Muscular weakness [Not Recovered/Not Resolved]
  - Muscle spasms [Not Recovered/Not Resolved]
  - Arthralgia [Not Recovered/Not Resolved]
  - Urine output decreased [Not Recovered/Not Resolved]
  - Endometrial hypertrophy [Recovered/Resolved]
  - Low density lipoprotein increased [Unknown]
  - Blood cholesterol increased [Unknown]
  - Rotator cuff syndrome [Recovering/Resolving]
  - Musculoskeletal pain [Unknown]
  - Muscle disorder [Unknown]
  - Joint injury [Unknown]
  - Pain in extremity [Not Recovered/Not Resolved]
  - Pain in extremity [Unknown]
  - Asthenia [Unknown]
  - Myalgia [Not Recovered/Not Resolved]
  - Fatigue [Not Recovered/Not Resolved]
  - Somnolence [Not Recovered/Not Resolved]
  - Insomnia [Unknown]
  - Bone pain [Unknown]
  - Drug ineffective [Unknown]
  - Urine output increased [Recovered/Resolved]
  - Asthenia [Recovering/Resolving]
  - Musculoskeletal pain [Recovering/Resolving]
  - Malaise [Unknown]
